FAERS Safety Report 8577429-3 (Version None)
Quarter: 2012Q3

REPORT INFORMATION
  Report Type: 
  Country: None (occurrence: None)
  Receive Date: 20120725
  Receipt Date: 20120713
  Transmission Date: 20120928
  Serious: Yes (Hospitalization)
  Sender: FDA-Public Use
  Company Number: 2012MA008881

PATIENT
  Sex: Female

DRUGS (13)
  1. TETRABENAZINE (TETRABENAZINE) [Suspect]
     Indication: PRODUCT USED FOR UNKNOWN INDICATION
     Dosage: 4.5 MG;QD
  2. MIRTAZAPINE [Suspect]
     Indication: PRODUCT USED FOR UNKNOWN INDICATION
     Dosage: 30 MG;QD
  3. BECONASE [Concomitant]
  4. LORAZEPAM [Suspect]
     Indication: PRODUCT USED FOR UNKNOWN INDICATION
     Dosage: 1 MG;TID
  5. ACRIVASTINE [Concomitant]
  6. OMEPRAZOLE [Concomitant]
  7. FENOFIBRATE [Concomitant]
  8. METOCLOPRAMIDE HYDROCHLORIDE [Suspect]
     Indication: PRODUCT USED FOR UNKNOWN INDICATION
  9. PROPRANOLOL HCL [Suspect]
     Indication: PRODUCT USED FOR UNKNOWN INDICATION
     Dosage: 10 MG;Q4H
  10. PAROXETINE HCL [Suspect]
     Indication: DEPRESSION
     Dosage: 20 MG;BID;PO
     Route: 048
     Dates: start: 20111101
  11. BENDROFLUMETHIAZIDE [Concomitant]
  12. RAMIPRIL [Concomitant]
  13. ATORVASTATIN [Concomitant]

REACTIONS (6)
  - MUSCLE CONTRACTIONS INVOLUNTARY [None]
  - DYSKINESIA [None]
  - HYPOPHAGIA [None]
  - HALLUCINATION [None]
  - AKATHISIA [None]
  - FALL [None]
